FAERS Safety Report 8964271 (Version 1)
Quarter: 2012Q4

REPORT INFORMATION
  Report Type: 
  Country: US (occurrence: US)
  Receive Date: 20121214
  Receipt Date: 20121214
  Transmission Date: 20130627
  Serious: No
  Sender: FDA-Public Use
  Company Number: US-GLAXOSMITHKLINE-A0956463A

PATIENT
  Age: 72 Year
  Sex: Male

DRUGS (6)
  1. AVODART [Suspect]
     Indication: BENIGN PROSTATIC HYPERPLASIA
     Dosage: 1CAPL Per day
     Route: 048
     Dates: start: 2009
  2. URSODIOL [Suspect]
  3. PREDNISONE [Suspect]
  4. LANSOPRAZOLE [Concomitant]
  5. VITAMIN D [Concomitant]
  6. ASPIRIN [Concomitant]

REACTIONS (2)
  - Prostatic specific antigen increased [Unknown]
  - Drug interaction [Unknown]
